FAERS Safety Report 5528534-7 (Version None)
Quarter: 2007Q4

REPORT INFORMATION
  Report Type: 
  Country: None (occurrence: None)
  Receive Date: 20071121
  Receipt Date: 20071106
  Transmission Date: 20080405
  Serious: Yes (Other)
  Sender: FDA-Public Use
  Company Number: 2007S1011577

PATIENT
  Age: 43 Year
  Sex: Male
  Weight: 76.9 kg

DRUGS (7)
  1. CITALOPRAM HYDROBROMIDE [Suspect]
     Indication: DEPRESSION
     Dosage: 20 MG; DAILY; ORAL
     Route: 048
     Dates: start: 20070906, end: 20070912
  2. TRAMADOL HCL [Suspect]
     Indication: BACK PAIN
     Dosage: 4 TIMES A DAY; ORAL
     Route: 048
     Dates: start: 20070906, end: 20070912
  3. ASPIRIN [Concomitant]
  4. ATENOLOL [Concomitant]
  5. ATORVASTATIN [Concomitant]
  6. DICLOFENAC [Concomitant]
  7. PARACETAMOL [Concomitant]

REACTIONS (2)
  - EMOTIONAL DISTRESS [None]
  - HALLUCINATION, VISUAL [None]
